FAERS Safety Report 16533901 (Version 6)
Quarter: 2019Q4

REPORT INFORMATION
  Report Type: Spontaneous
  Country: US (occurrence: US)
  Receive Date: 20190705
  Receipt Date: 20191118
  Transmission Date: 20200122
  Serious: Yes (Other)
  Sender: FDA-Public Use
  Company Number: PHEH2019US028289

PATIENT
  Sex: Male

DRUGS (11)
  1. CALCIUM AND  VITAMIN D [Concomitant]
     Active Substance: CALCIUM\VITAMIN D
     Indication: PRODUCT USED FOR UNKNOWN INDICATION
     Dosage: UNK (500-1000M)
     Route: 065
  2. VOTRIENT [Suspect]
     Active Substance: PAZOPANIB HYDROCHLORIDE
     Dosage: 600 MG, QD (3 TABLETS, NIGHTLY)
     Route: 048
     Dates: end: 201908
  3. LORAZEPAM. [Concomitant]
     Active Substance: LORAZEPAM
     Indication: PRODUCT USED FOR UNKNOWN INDICATION
     Dosage: UNK
     Route: 065
  4. BENTYL [Concomitant]
     Active Substance: DICYCLOMINE HYDROCHLORIDE
     Indication: PRODUCT USED FOR UNKNOWN INDICATION
     Dosage: UNK
     Route: 065
  5. LOMOTIL [Concomitant]
     Active Substance: ATROPINE SULFATE\DIPHENOXYLATE HYDROCHLORIDE
     Indication: PRODUCT USED FOR UNKNOWN INDICATION
     Dosage: UNK (2.5-0.02 MG)
     Route: 065
  6. PEPCID [Concomitant]
     Active Substance: FAMOTIDINE
     Indication: PRODUCT USED FOR UNKNOWN INDICATION
     Dosage: UNK
     Route: 065
  7. PANTOPRAZOLE [Concomitant]
     Active Substance: PANTOPRAZOLE
     Indication: PRODUCT USED FOR UNKNOWN INDICATION
     Dosage: UNK
     Route: 065
  8. SUCRALFATE. [Concomitant]
     Active Substance: SUCRALFATE
     Indication: PRODUCT USED FOR UNKNOWN INDICATION
     Dosage: UNK
     Route: 065
  9. VOTRIENT [Suspect]
     Active Substance: PAZOPANIB HYDROCHLORIDE
     Indication: RENAL CANCER
     Dosage: 600 MG, QD (3 TABLETS, NIGHTLY)
     Route: 048
     Dates: start: 20190702
  10. VOTRIENT [Suspect]
     Active Substance: PAZOPANIB HYDROCHLORIDE
     Dosage: 600 MG, QD (3 TABLETS, NIGHTLY)
     Route: 065
     Dates: start: 20191002
  11. PREDNISONE. [Concomitant]
     Active Substance: PREDNISONE
     Indication: PRODUCT USED FOR UNKNOWN INDICATION
     Dosage: UNK
     Route: 065

REACTIONS (8)
  - Diarrhoea [Recovered/Resolved]
  - Musculoskeletal chest pain [Recovered/Resolved]
  - Anxiety [Not Recovered/Not Resolved]
  - Faeces discoloured [Unknown]
  - Gastric ulcer [Recovered/Resolved]
  - Abdominal pain upper [Not Recovered/Not Resolved]
  - Pharyngeal ulceration [Not Recovered/Not Resolved]
  - Vomiting [Not Recovered/Not Resolved]
